FAERS Safety Report 23331026 (Version 1)
Quarter: 2023Q4

REPORT INFORMATION
  Report Type: Spontaneous
  Country: AU (occurrence: AU)
  Receive Date: 20231222
  Receipt Date: 20231222
  Transmission Date: 20240110
  Serious: Yes (Other)
  Sender: FDA-Public Use
  Company Number: AU-CURIUM-2023001006

PATIENT
  Age: 44 Year
  Sex: Female

DRUGS (2)
  1. TECHNESCAN HDP [Suspect]
     Active Substance: TECHNETIUM TC-99M OXIDRONATE
     Indication: Bone scan
     Route: 040
     Dates: start: 20231109, end: 20231109
  2. TECHNETIUM TC-99M SODIUM PERTECHNETATE [Concomitant]
     Active Substance: TECHNETIUM TC-99M SODIUM PERTECHNETATE
     Indication: Bone scan
     Route: 040
     Dates: start: 20231109, end: 20231109

REACTIONS (6)
  - Malaise [Recovered/Resolved]
  - Blindness [Recovered/Resolved]
  - Hot flush [Recovered/Resolved]
  - Vertigo [Recovered/Resolved]
  - Nausea [Recovered/Resolved]
  - Vomiting [Recovered/Resolved]

NARRATIVE: CASE EVENT DATE: 20231109
